FAERS Safety Report 21037139 (Version 1)
Quarter: 2022Q3

REPORT INFORMATION
  Report Type: Spontaneous
  Country: CZ (occurrence: CZ)
  Receive Date: 20220703
  Receipt Date: 20220703
  Transmission Date: 20221027
  Serious: Yes (Disabling, Other)
  Sender: FDA-Public Use
  Company Number: CZ-SANOFI-AVENTIS-2012SA078117

PATIENT
  Age: 38 Year
  Sex: Male

DRUGS (18)
  1. ARIPIPRAZOLE [Suspect]
     Active Substance: ARIPIPRAZOLE
     Indication: Product used for unknown indication
     Dosage: 15 MILLIGRAM DAILY; FORM STRENGTH : 15 MG,QD, THERAPY END DATE: ASKU, ADDITIONAL INFO: ABILIFY
     Route: 048
     Dates: start: 200711
  2. AMISULPRIDE [Suspect]
     Active Substance: AMISULPRIDE
     Indication: Schizophrenia
     Dosage: 600 MILLIGRAM DAILY; FORM STRENGTH : 600 MG , 600 MG, QD, ADDITIONAL INFO : SOLIAN , DURATION : 12 Y
     Route: 048
     Dates: start: 2000, end: 2011
  3. BENFOTIAMINE [Concomitant]
     Active Substance: BENFOTIAMINE
     Indication: Product used for unknown indication
     Dosage: UNK, THERAPY END DATE: ASKU, ADDITIONAL INFO: MILGAMMA
     Dates: start: 2000
  4. PSYLLIUM [Concomitant]
     Active Substance: PLANTAGO SEED
     Indication: Product used for unknown indication
     Dosage: THERAPY START AND END DATE: ASKU , PSYLLIUM [PLANTAGO AFRA]
  5. FISH OIL [Concomitant]
     Active Substance: FISH OIL
     Indication: Product used for unknown indication
     Dosage: THERAPY START AND END DATE: ASKU
  6. AMITRIPTYLINE [Concomitant]
     Active Substance: AMITRIPTYLINE
     Indication: Product used for unknown indication
     Dosage: UNK, THERAPY END DATE: ASKU, ADDITIONAL INFO: AMITRIPTILIN
     Dates: start: 2000
  7. BROMAZEPAM [Concomitant]
     Active Substance: BROMAZEPAM
     Indication: Product used for unknown indication
     Dosage: UNK, THERAPY END DATE: ASKU, ADDITIONAL INFO: BROMAZEPAM
     Dates: start: 2000
  8. DIAZEPAM [Concomitant]
     Active Substance: DIAZEPAM
     Indication: Product used for unknown indication
     Dosage: UNK, THERAPY END DATE: ASKU, ADDITIONAL INFO: DIAZEPAM
     Dates: start: 2000
  9. VITAMIN D [Concomitant]
     Active Substance: VITAMIN D NOS
     Indication: Product used for unknown indication
     Dosage: THERAPY START AND END DATE: ASKU
  10. BETAXOLOL HYDROCHLORIDE [Concomitant]
     Active Substance: BETAXOLOL HYDROCHLORIDE
     Indication: Product used for unknown indication
     Dosage: UNK, THERAPY END DATE: ASKU, ADDITIONAL INFO: LOKREN
     Dates: start: 2000
  11. ZOLOFT [Concomitant]
     Active Substance: SERTRALINE HYDROCHLORIDE
     Indication: Product used for unknown indication
     Dosage: UNK, THERAPY END DATE: ASKU, ADDITIONAL INFO : ZOLOFT
     Dates: start: 2000
  12. SEROPRAM [Concomitant]
     Indication: Product used for unknown indication
     Dosage: UNK, THERAPY END DATE: ASKU, ADDITIONAL INFO: SEROPRAM
     Dates: start: 2000
  13. VITAMIN B COMPLEX [Concomitant]
     Active Substance: CYANOCOBALAMIN\DEXPANTHENOL\NIACINAMIDE\PYRIDOXINE HYDROCHLORIDE\RIBOFLAVIN 5^-PHOSPHATE SODIUM\THIA
     Indication: Product used for unknown indication
     Dosage: THERAPY START AND END DATE: ASKU
  14. ISOPRINOSINE [Concomitant]
     Active Substance: INOSINE PRANOBEX
     Indication: Product used for unknown indication
     Dosage: UNK, THERAPY END DATE: ASKU, ADDITIONAL INFO: ISOPRINOSINE
     Dates: start: 2000
  15. RISPERIDONE [Concomitant]
     Active Substance: RISPERIDONE
     Indication: Product used for unknown indication
     Dosage: UNK, THERAPY END DATE: ASKU, ADDITIONAL INFO:RISPERIDONE
     Dates: start: 2000
  16. COENZYME Q10 [Concomitant]
     Active Substance: DIETARY SUPPLEMENT\UBIDECARENONE
     Indication: Product used for unknown indication
     Dosage: THERAPY START AND END DATE: ASKU , COENZYME Q10 [UBIDECARENONE]
  17. GINKGO [Concomitant]
     Active Substance: GINKGO
     Indication: Product used for unknown indication
     Dosage: THERAPY START AND END DATE: ASKU
  18. LITHIUM [Concomitant]
     Active Substance: LITHIUM
     Indication: Product used for unknown indication
     Dosage: UNK, THERAPY END DATE: ASKU, ADDITIONAL INFO: LITHIUM
     Dates: start: 2000

REACTIONS (25)
  - Hypersensitivity [Not Recovered/Not Resolved]
  - Mucosal dryness [Not Recovered/Not Resolved]
  - Cholestasis [Unknown]
  - Off label use [Unknown]
  - Drug dependence [Unknown]
  - Oral mucosal hypertrophy [Not Recovered/Not Resolved]
  - Type 2 diabetes mellitus [Unknown]
  - Diabetic metabolic decompensation [Unknown]
  - Dyskinesia [Not Recovered/Not Resolved]
  - Diaphragmatic paralysis [Unknown]
  - Erectile dysfunction [Not Recovered/Not Resolved]
  - Angular cheilitis [Not Recovered/Not Resolved]
  - Muscle rigidity [Not Recovered/Not Resolved]
  - Blood creatinine increased [Not Recovered/Not Resolved]
  - Depressed mood [Not Recovered/Not Resolved]
  - Pituitary tumour benign [Unknown]
  - Overweight [Unknown]
  - Dyspnoea [Unknown]
  - Salivary hypersecretion [Not Recovered/Not Resolved]
  - Pain [Not Recovered/Not Resolved]
  - Hypersensitivity [Not Recovered/Not Resolved]
  - Hypoaesthesia [Not Recovered/Not Resolved]
  - Rhinorrhoea [Not Recovered/Not Resolved]
  - Liver function test increased [Not Recovered/Not Resolved]
  - Gynaecomastia [Not Recovered/Not Resolved]

NARRATIVE: CASE EVENT DATE: 20060331
